FAERS Safety Report 7215179-6 (Version None)
Quarter: 2011Q1

REPORT INFORMATION
  Report Type: 
  Country: None (occurrence: None)
  Receive Date: 20110107
  Receipt Date: 20101006
  Transmission Date: 20110831
  Serious: No
  Sender: FDA-Public Use
  Company Number: A0885227A

PATIENT
  Age: 63 Year
  Sex: Female

DRUGS (7)
  1. UNSPECIFIED MEDICATION [Concomitant]
  2. SYNTHROID [Concomitant]
  3. LOPERAMIDE [Concomitant]
  4. LOVAZA [Suspect]
     Dosage: 1G FOUR TIMES PER DAY
     Route: 048
     Dates: start: 20100101
  5. METOPROLOL [Concomitant]
  6. ALTACE [Concomitant]
  7. COUMADIN [Concomitant]
     Dosage: 5MG SEE DOSAGE TEXT

REACTIONS (1)
  - PROTHROMBIN TIME SHORTENED [None]
